FAERS Safety Report 12691005 (Version 1)
Quarter: 2016Q3

REPORT INFORMATION
  Report Type: Spontaneous
  Country: GB (occurrence: GB)
  Receive Date: 20160826
  Receipt Date: 20160826
  Transmission Date: 20161109
  Serious: Yes (Hospitalization, Other)
  Sender: FDA-Public Use
  Company Number: GB-MYLANLABS-2016M1035630

PATIENT

DRUGS (2)
  1. LEVOTHYROXINE. [Concomitant]
     Active Substance: LEVOTHYROXINE
     Dosage: UNK
  2. INDAPAMIDE. [Suspect]
     Active Substance: INDAPAMIDE
     Indication: ESSENTIAL HYPERTENSION
     Dosage: 2.5 MG, UNK
     Route: 048
     Dates: start: 20160727, end: 20160803

REACTIONS (4)
  - Fatigue [Unknown]
  - Confusional state [Unknown]
  - Asthenia [Unknown]
  - Hyponatraemia [Recovering/Resolving]

NARRATIVE: CASE EVENT DATE: 20160727
